FAERS Safety Report 14404820 (Version 1)
Quarter: 2018Q1

REPORT INFORMATION
  Report Type: Spontaneous
  Country: BR (occurrence: BR)
  Receive Date: 20180118
  Receipt Date: 20180118
  Transmission Date: 20180509
  Serious: Yes (Other)
  Sender: FDA-Public Use
  Company Number: BR-009507513-1801BRA004724

PATIENT
  Sex: Female

DRUGS (1)
  1. IMPLANON [Suspect]
     Active Substance: ETONOGESTREL
     Indication: MENSTRUAL CYCLE MANAGEMENT
     Dosage: 1 DF, UNK
     Route: 059
     Dates: start: 20171023

REACTIONS (3)
  - Product use issue [Unknown]
  - Retinal artery occlusion [Not Recovered/Not Resolved]
  - Retinal artery thrombosis [Not Recovered/Not Resolved]

NARRATIVE: CASE EVENT DATE: 20171023
